FAERS Safety Report 11115201 (Version 1)
Quarter: 2015Q2

REPORT INFORMATION
  Report Type: Spontaneous
  Country: US (occurrence: None)
  Receive Date: 20150507
  Receipt Date: 20150507
  Transmission Date: 20150821
  Serious: Yes (Hospitalization)
  Sender: FDA-Public Use
  Company Number: 2013AP009021

PATIENT
  Age: 54 Year
  Sex: Female

DRUGS (4)
  1. TOPIRAMATE (TOPIRAMATE) UNKNOWN [Suspect]
     Active Substance: TOPIRAMATE
     Indication: HEMIPLEGIC MIGRAINE
  2. FLUNARIZINE [Suspect]
     Active Substance: FLUNARIZINE
     Indication: HEMIPLEGIC MIGRAINE
     Route: 048
  3. ESCITALOPRAM [Concomitant]
     Active Substance: ESCITALOPRAM OXALATE
  4. VALPROAT (VALPROATE SODIUM) UNKNOWN [Concomitant]

REACTIONS (1)
  - Depression [None]
